FAERS Safety Report 21016231 (Version 1)
Quarter: 2022Q2

REPORT INFORMATION
  Report Type: Report from Study
  Country: FR (occurrence: FR)
  Receive Date: 20220628
  Receipt Date: 20220628
  Transmission Date: 20220721
  Serious: Yes (Death, Other)
  Sender: FDA-Public Use
  Company Number: FR-MYLANLABS-2022M1048318

PATIENT
  Age: 55 Year
  Sex: Male

DRUGS (3)
  1. CARBOPLATIN [Suspect]
     Active Substance: CARBOPLATIN
     Indication: Non-small cell lung cancer
     Dosage: UNK, CYCLE (FIRST-LINE CHEMOTHERAPY WITH FOUR CYCLES)
     Route: 065
     Dates: start: 2019
  2. PEMETREXED [Suspect]
     Active Substance: PEMETREXED
     Indication: Non-small cell lung cancer
     Dosage: UNK, CYCLE (FIRST-LINE CHEMOTHERAPY WITH FOUR CYCLES)
     Route: 065
     Dates: start: 2019
  3. PEMETREXED [Suspect]
     Active Substance: PEMETREXED
     Dosage: UNK (MAINTENANCE THERAPY)
     Route: 065

REACTIONS (2)
  - Death [Fatal]
  - Drug ineffective [Unknown]
